FAERS Safety Report 4889457-X (Version None)
Quarter: 2006Q1

REPORT INFORMATION
  Report Type: 
  Country: None (occurrence: None)
  Receive Date: 20060124
  Receipt Date: 20060117
  Transmission Date: 20060701
  Serious: Yes (Hospitalization)
  Sender: FDA-Public Use
  Company Number: SE-AVENTIS-200610612GDDC

PATIENT
  Age: 50 Year
  Sex: Female
  Weight: 55 kg

DRUGS (3)
  1. DOCETAXEL [Suspect]
     Indication: BREAST CANCER
     Route: 042
     Dates: start: 20051129, end: 20060113
  2. BETAMETASONE [Concomitant]
     Dosage: DOSE: 8 MG DURING 3 DAYS WHEN STUDY TREATMENTS GIVEN
     Dates: start: 20051128
  3. BETAMETASONE [Concomitant]
     Dates: start: 20060109, end: 20060115

REACTIONS (2)
  - CONFUSIONAL STATE [None]
  - EMOTIONAL DISTRESS [None]
